FAERS Safety Report 11506304 (Version 1)
Quarter: 2015Q3

REPORT INFORMATION
  Report Type: Spontaneous
  Country: US (occurrence: US)
  Receive Date: 20150915
  Receipt Date: 20150915
  Transmission Date: 20151125
  Serious: No
  Sender: FDA-Public Use
  Company Number: US-ROCHE-794599

PATIENT
  Age: 58 Year
  Sex: Female

DRUGS (4)
  1. COPEGUS [Suspect]
     Active Substance: RIBAVIRIN
     Indication: HEPATITIS C
     Route: 065
  2. COPEGUS [Suspect]
     Active Substance: RIBAVIRIN
     Route: 065
  3. COPEGUS [Suspect]
     Active Substance: RIBAVIRIN
     Dosage: RIBAVIRIN DOSE WAS INCREASED.
     Route: 065
  4. PEGASYS [Suspect]
     Active Substance: PEGINTERFERON ALFA-2A
     Indication: HEPATITIS C
     Route: 065

REACTIONS (5)
  - Anaemia [Unknown]
  - Atypical mycobacterial infection [Unknown]
  - Bronchiolitis [Unknown]
  - Dyspnoea exertional [Unknown]
  - Neutropenia [Unknown]

NARRATIVE: CASE EVENT DATE: 20110217
